FAERS Safety Report 5257792-1 (Version None)
Quarter: 2007Q1

REPORT INFORMATION
  Report Type: 
  Country: None (occurrence: None)
  Receive Date: 20070307
  Receipt Date: 20070228
  Transmission Date: 20070707
  Serious: Yes (Hospitalization)
  Sender: FDA-Public Use
  Company Number: 2006UW22427

PATIENT
  Age: 19283 Day
  Sex: Female
  Weight: 45.5 kg

DRUGS (5)
  1. SEROQUEL [Suspect]
     Indication: INSOMNIA
     Route: 048
     Dates: start: 20030412, end: 20060612
  2. SEROQUEL [Suspect]
     Indication: DEPRESSION
     Route: 048
     Dates: start: 20030412, end: 20060612
  3. ABILIFY [Suspect]
  4. PAXIL [Suspect]
  5. RELACORE [Concomitant]
     Indication: WEIGHT CONTROL

REACTIONS (2)
  - DIABETES MELLITUS [None]
  - MENINGITIS [None]
